FAERS Safety Report 14184795 (Version 3)
Quarter: 2018Q3

REPORT INFORMATION
  Report Type: Report from Study
  Country: US (occurrence: US)
  Receive Date: 20171113
  Receipt Date: 20180911
  Transmission Date: 20181010
  Serious: Yes (Hospitalization)
  Sender: FDA-Public Use
  Company Number: US-ACTELION-A-NJ2017-162211

PATIENT
  Age: 38 Year
  Sex: Female
  Weight: 79.37 kg

DRUGS (1)
  1. OPSUMIT [Suspect]
     Active Substance: MACITENTAN
     Indication: PULMONARY ARTERIAL HYPERTENSION
     Dosage: 10 MG, QD
     Route: 048

REACTIONS (15)
  - Diarrhoea [Unknown]
  - Infection [Unknown]
  - Dehydration [Unknown]
  - Syncope [Unknown]
  - Hypotension [Unknown]
  - Drug dose omission [Unknown]
  - Loss of consciousness [Unknown]
  - Nausea [Unknown]
  - Asthenia [Unknown]
  - Clostridium difficile infection [Unknown]
  - Fatigue [Unknown]
  - Decreased appetite [Unknown]
  - Feeling hot [Unknown]
  - Malaise [Unknown]
  - Vomiting [Unknown]

NARRATIVE: CASE EVENT DATE: 20171208
